FAERS Safety Report 5334363-X (Version None)
Quarter: 2007Q2

REPORT INFORMATION
  Report Type: 
  Country: None (occurrence: None)
  Receive Date: 20070525
  Receipt Date: 20060526
  Transmission Date: 20071010
  Serious: No
  Sender: FDA-Public Use
  Company Number: US-BRISTOL-MYERS SQUIBB COMPANY-13391842

PATIENT
  Sex: Male
  Weight: 88 kg

DRUGS (3)
  1. CYTOXAN [Suspect]
     Indication: SARCOMA
     Route: 042
     Dates: start: 20060525
  2. DOXORUBICIN [Concomitant]
  3. WARFARIN SODIUM [Concomitant]

REACTIONS (1)
  - RASH [None]
